FAERS Safety Report 4939113-4 (Version None)
Quarter: 2006Q1

REPORT INFORMATION
  Report Type: 
  Country: None (occurrence: None)
  Receive Date: 20060306
  Receipt Date: 20060223
  Transmission Date: 20060701
  Serious: Yes (Disabling, Other)
  Sender: FDA-Public Use
  Company Number: 2002-09-0653

PATIENT
  Age: 42 Year
  Sex: Female
  Weight: 65.7716 kg

DRUGS (8)
  1. PEG-INTRON [Suspect]
     Indication: HEPATITIS C
     Dosage: ^4 MG^ QWK INTRAMUSCULAR
     Route: 030
     Dates: start: 20020301, end: 20020614
  2. REBETOL [Suspect]
     Indication: HEPATITIS C
     Dosage: 800 MG QD ORAL
     Route: 048
     Dates: start: 20020301, end: 20020614
  3. VICODIN [Concomitant]
  4. FOLIC ACID [Concomitant]
  5. CELEXA [Concomitant]
  6. DALMANE UNKNOWN [Concomitant]
  7. ZOLOFT [Concomitant]
  8. NORFLEX [Concomitant]

REACTIONS (70)
  - ABSCESS [None]
  - ALOPECIA [None]
  - ARTHRALGIA [None]
  - ARTHRITIS [None]
  - ASTHENIA [None]
  - AUTOIMMUNE DISORDER [None]
  - BALANCE DISORDER [None]
  - BLOOD CALCIUM DECREASED [None]
  - BLOOD IMMUNOGLOBULIN G DECREASED [None]
  - BRONCHITIS [None]
  - CAPILLARY DISORDER [None]
  - CONFUSIONAL STATE [None]
  - CONNECTIVE TISSUE DISORDER [None]
  - CYST [None]
  - DEAFNESS [None]
  - DEPRESSION [None]
  - DIFFICULTY IN WALKING [None]
  - DIPLOPIA [None]
  - DIZZINESS [None]
  - DRY MOUTH [None]
  - DRY SKIN [None]
  - DYSGEUSIA [None]
  - DYSGRAPHIA [None]
  - DYSPHAGIA [None]
  - DYSPNOEA [None]
  - DYSSTASIA [None]
  - EAR PAIN [None]
  - EPISTAXIS [None]
  - FATIGUE [None]
  - FIBROMYALGIA [None]
  - GRIP STRENGTH DECREASED [None]
  - HAEMOPTYSIS [None]
  - HEADACHE [None]
  - HYPERHIDROSIS [None]
  - HYPOKALAEMIA [None]
  - HYPOSMIA [None]
  - INFLUENZA LIKE ILLNESS [None]
  - JOINT CREPITATION [None]
  - MEMORY IMPAIRMENT [None]
  - MENTAL IMPAIRMENT [None]
  - MUSCLE SPASMS [None]
  - MUSCLE STRAIN [None]
  - MUSCULOSKELETAL STIFFNESS [None]
  - MYALGIA [None]
  - MYOSITIS [None]
  - NAUSEA [None]
  - OEDEMA [None]
  - PAIN IN EXTREMITY [None]
  - PALPITATIONS [None]
  - PANCYTOPENIA [None]
  - PHARYNGOLARYNGEAL PAIN [None]
  - PHOTOSENSITIVITY REACTION [None]
  - POLYNEUROPATHY [None]
  - PROTEIN TOTAL INCREASED [None]
  - PRURITUS [None]
  - PYREXIA [None]
  - RAYNAUD'S PHENOMENON [None]
  - SCIATICA [None]
  - SHOULDER PAIN [None]
  - SINUSITIS [None]
  - SKIN DISCOLOURATION [None]
  - SLEEP DISORDER [None]
  - STOMATITIS [None]
  - SWELLING [None]
  - SYSTEMIC LUPUS ERYTHEMATOSUS [None]
  - TEMPOROMANDIBULAR JOINT SYNDROME [None]
  - TENDON DISORDER [None]
  - TENDONITIS [None]
  - VISION BLURRED [None]
  - VOMITING [None]
